FAERS Safety Report 5927235-0 (Version None)
Quarter: 2008Q4

REPORT INFORMATION
  Report Type: 
  Country: None (occurrence: None)
  Receive Date: 20081022
  Receipt Date: 20081014
  Transmission Date: 20090506
  Serious: Yes (Death, Other)
  Sender: FDA-Public Use
  Company Number: US-AMGEN-QUU283603

PATIENT
  Age: 24 Year
  Sex: Female
  Weight: 103.1 kg

DRUGS (1)
  1. ENBREL [Suspect]
     Indication: DRUG USE FOR UNKNOWN INDICATION
     Route: 065
     Dates: start: 20071015, end: 20080522

REACTIONS (9)
  - ARRHYTHMIA [None]
  - AUTOIMMUNE DISORDER [None]
  - CARDIOMEGALY [None]
  - DISEASE COMPLICATION [None]
  - DISEASE RECURRENCE [None]
  - HYPERTENSION [None]
  - OVARIAN CYST [None]
  - PNEUMONIA [None]
  - POLYCHONDRITIS [None]
